FAERS Safety Report 8485749-6 (Version None)
Quarter: 2012Q3

REPORT INFORMATION
  Report Type: 
  Country: None (occurrence: None)
  Receive Date: 20120703
  Receipt Date: 20120622
  Transmission Date: 20120928
  Serious: Yes (Hospitalization, Other)
  Sender: FDA-Public Use
  Company Number: CA-ROCHE-1082294

PATIENT
  Sex: Female
  Weight: 34.05 kg

DRUGS (12)
  1. EZETIMIBE [Concomitant]
  2. FOLIC ACID [Concomitant]
  3. CLARITHROMYCIN [Concomitant]
  4. PREDNISONE [Concomitant]
  5. CALCIUM [Concomitant]
  6. LEVOFLOXACIN [Concomitant]
  7. METHOTREXATE [Concomitant]
  8. ASPIRIN [Concomitant]
  9. ACTEMRA [Suspect]
     Indication: RHEUMATOID ARTHRITIS
     Route: 042
     Dates: start: 20120420
  10. FOSAMAX [Concomitant]
  11. ETHAMBUTOL HYDROCHLORIDE [Concomitant]
     Dosage: BRAND NAME: AMBUTOL
  12. VITAMIN D [Concomitant]

REACTIONS (5)
  - RESPIRATORY DISTRESS [None]
  - RESPIRATORY RATE INCREASED [None]
  - HEART RATE INCREASED [None]
  - PALLOR [None]
  - RALES [None]
